FAERS Safety Report 5354341-4 (Version None)
Quarter: 2007Q2

REPORT INFORMATION
  Report Type: 
  Country: None (occurrence: None)
  Receive Date: 20070521
  Receipt Date: 20070212
  Transmission Date: 20071010
  Serious: No
  Sender: FDA-Public Use
  Company Number: WAES 0702USA01921

PATIENT
  Age: 77 Year
  Sex: Female

DRUGS (7)
  1. JANUVIA [Suspect]
     Indication: DIABETES MELLITUS NON-INSULIN-DEPENDENT
     Dosage: 100 MG/DAILY/PO
     Route: 048
     Dates: start: 20070207
  2. ACTOS [Concomitant]
  3. DIABETA [Concomitant]
  4. DIMENE [Concomitant]
  5. VYTORIN [Concomitant]
  6. ZEBETA [Concomitant]
  7. [THERAPY UNSPECIFIED] [Concomitant]

REACTIONS (2)
  - LIMB DISCOMFORT [None]
  - PHARYNGOLARYNGEAL PAIN [None]
